FAERS Safety Report 6010506-X (Version None)
Quarter: 2008Q4

REPORT INFORMATION
  Report Type: 
  Country: None (occurrence: None)
  Receive Date: 20081218
  Receipt Date: 20081210
  Transmission Date: 20090506
  Serious: Yes (Other)
  Sender: FDA-Public Use
  Company Number: PT-JNJFOC-20081202881

PATIENT
  Sex: Male

DRUGS (2)
  1. PREZISTA [Suspect]
     Indication: HIV INFECTION
     Route: 048
  2. EFAVIRENZ [Concomitant]
     Indication: HIV INFECTION

REACTIONS (1)
  - NEUROPATHY PERIPHERAL [None]
